FAERS Safety Report 11024545 (Version 1)
Quarter: 2015Q2

REPORT INFORMATION
  Report Type: Spontaneous
  Country: US (occurrence: US)
  Receive Date: 20150414
  Receipt Date: 20150414
  Transmission Date: 20150821
  Serious: Yes (Other)
  Sender: FDA-Public Use
  Company Number: US-DRREDDYS-USA/USA/15/0047255

PATIENT
  Age: 69 Year
  Sex: Female

DRUGS (2)
  1. TOPOTECAN HYDROCHLORIDE FOR INJECTION [Suspect]
     Active Substance: TOPOTECAN HYDROCHLORIDE
     Indication: ADENOCARCINOMA
  2. LIPOSOMAL CYTARABINE [Suspect]
     Active Substance: CYTARABINE
     Indication: ADENOCARCINOMA

REACTIONS (1)
  - Cyst [Recovered/Resolved]
